FAERS Safety Report 12381857 (Version 1)
Quarter: 2016Q2

REPORT INFORMATION
  Report Type: Spontaneous
  Country: US (occurrence: None)
  Receive Date: 20160517
  Receipt Date: 20160517
  Transmission Date: 20160815
  Serious: Yes (Other)
  Sender: FDA-Public Use
  Company Number: None

PATIENT
  Sex: Female
  Weight: 68.95 kg

DRUGS (3)
  1. LAMOTRIGINE ER 200MG [Suspect]
     Active Substance: LAMOTRIGINE
     Indication: SEIZURE
     Dosage: 200 MG ONCE - TWICE QD ORAL
     Route: 048
     Dates: start: 200904, end: 201107
  2. KEPPRA XR [Suspect]
     Active Substance: LEVETIRACETAM
  3. TEGRETOL [Suspect]
     Active Substance: CARBAMAZEPINE

REACTIONS (6)
  - Drug ineffective [None]
  - Dysarthria [None]
  - Seizure [None]
  - Anxiety [None]
  - Mood swings [None]
  - Anger [None]
